FAERS Safety Report 5997539-4 (Version None)
Quarter: 2008Q4

REPORT INFORMATION
  Report Type: 
  Country: None (occurrence: None)
  Receive Date: 20081212
  Receipt Date: 20081112
  Transmission Date: 20090506
  Serious: No
  Sender: FDA-Public Use
  Company Number: US-ABBOTT-08P-163-0488088-00

PATIENT
  Sex: Male
  Weight: 86.26 kg

DRUGS (2)
  1. HUMIRA [Suspect]
     Indication: PSORIASIS
     Route: 058
     Dates: start: 20081006
  2. CHLORPHENIRAMINE MALEATE AND PSEUDOEPHEDRINE HCL [Concomitant]
     Indication: HYPERSENSITIVITY
     Dosage: 8/120MG
     Route: 048

REACTIONS (1)
  - INJECTION SITE PAIN [None]
